FAERS Safety Report 24281302 (Version 1)
Quarter: 2024Q3

REPORT INFORMATION
  Report Type: Spontaneous
  Country: US (occurrence: None)
  Receive Date: 20240830
  Receipt Date: 20240830
  Transmission Date: 20241016
  Serious: No
  Sender: Public
  Company Number: None

PATIENT
  Age: 51 Year
  Sex: Female
  Weight: 78.75 kg

DRUGS (1)
  1. XGEVA [Suspect]
     Active Substance: DENOSUMAB
     Dosage: 120 MG EVERY 4 WEEKS SUBCUTANEOUS ?
     Route: 058

REACTIONS (1)
  - Wrong patient received product [None]

NARRATIVE: CASE EVENT DATE: 20240830
